FAERS Safety Report 9186381 (Version 2)
Quarter: 2013Q2

REPORT INFORMATION
  Report Type: Spontaneous
  Country: SE (occurrence: SE)
  Receive Date: 20130325
  Receipt Date: 20130412
  Transmission Date: 20140414
  Serious: Yes (Other)
  Sender: FDA-Public Use
  Company Number: PHHY2013SE028338

PATIENT
  Sex: Male

DRUGS (2)
  1. LAMISIL [Suspect]
     Indication: ONYCHOMYCOSIS
     Dosage: 250 MG, QD (PER DAY)
     Route: 048
     Dates: start: 2004, end: 2004
  2. LAMISIL [Suspect]
     Dosage: 250 MG, QD (1 TABLET PER DAY)
     Route: 048
     Dates: start: 2004, end: 2004

REACTIONS (5)
  - Actinic keratosis [Not Recovered/Not Resolved]
  - Lip dry [Unknown]
  - Lip exfoliation [Unknown]
  - Lip ulceration [Unknown]
  - Salivary hypersecretion [Unknown]
